FAERS Safety Report 9624824 (Version 2)
Quarter: 2013Q4

REPORT INFORMATION
  Report Type: Spontaneous
  Country: JP (occurrence: JP)
  Receive Date: 20131015
  Receipt Date: 20131015
  Transmission Date: 20140711
  Serious: Yes (Other)
  Sender: FDA-Public Use
  Company Number: JP-ABBVIE-13P-087-1061164-00

PATIENT
  Age: 19 Year
  Sex: Male

DRUGS (3)
  1. HUMIRA [Suspect]
     Indication: CROHN^S DISEASE
     Route: 058
     Dates: start: 20110128, end: 20110128
  2. HUMIRA [Suspect]
     Dates: start: 20110210, end: 20110210
  3. HUMIRA [Suspect]
     Dates: start: 20110324, end: 20130228

REACTIONS (2)
  - Renal tubular disorder [Recovering/Resolving]
  - Renal impairment [Unknown]
